FAERS Safety Report 8780769 (Version 1)
Quarter: 2012Q4

REPORT INFORMATION
  Report Type: 
  Country: US (occurrence: US)
  Receive Date: 20120913
  Receipt Date: 20120913
  Transmission Date: 20130627
  Serious: Yes (Disabling)
  Sender: FDA-Public Use
  Company Number: US-SANOFI-AVENTIS-2012SA064624

PATIENT
  Age: 22 Year
  Sex: Female

DRUGS (1)
  1. ALLEGRA D [Suspect]
     Route: 065
     Dates: start: 1992

REACTIONS (6)
  - Dystonia [Unknown]
  - Muscle contracture [Unknown]
  - Posture abnormal [Unknown]
  - Nystagmus [Unknown]
  - Pain in extremity [Unknown]
  - Drug hypersensitivity [Unknown]
